FAERS Safety Report 16732341 (Version 1)
Quarter: 2019Q3

REPORT INFORMATION
  Report Type: Spontaneous
  Country: DE (occurrence: DE)
  Receive Date: 20190822
  Receipt Date: 20190822
  Transmission Date: 20191005
  Serious: Yes (Life-Threatening, Hospitalization)
  Sender: FDA-Public Use
  Company Number: DE-BAXTER-2019BAX016049

PATIENT
  Age: 72 Year
  Sex: Female
  Weight: 86 kg

DRUGS (2)
  1. EPIRUBICIN [Suspect]
     Active Substance: EPIRUBICIN
     Indication: BREAST CANCER FEMALE
     Dosage: DAILY DOSE: 2 DF DOSAGE FORM EVERY TOTAL 2 SEPARATED DOSES
     Route: 042
     Dates: start: 20190614, end: 20190628
  2. ENDOXAN 1G [Suspect]
     Active Substance: CYCLOPHOSPHAMIDE
     Indication: BREAST CANCER FEMALE
     Dosage: DAILY DOSE: 2 DF DOSAGE FORM EVERY TOTAL 2 SEPARATED DOSES
     Route: 042
     Dates: start: 20190614, end: 20190628

REACTIONS (3)
  - Mucosal toxicity [Not Recovered/Not Resolved]
  - Respiratory failure [Not Recovered/Not Resolved]
  - Obstructive airways disorder [Not Recovered/Not Resolved]

NARRATIVE: CASE EVENT DATE: 20190704
